FAERS Safety Report 8251360-5 (Version None)
Quarter: 2012Q2

REPORT INFORMATION
  Report Type: 
  Country: None (occurrence: None)
  Receive Date: 20120402
  Receipt Date: 20120320
  Transmission Date: 20120825
  Serious: Yes (Other)
  Sender: FDA-Public Use
  Company Number: FR-GLAXOSMITHKLINE-B0790754A

PATIENT
  Age: 46 Year
  Sex: Female

DRUGS (1)
  1. LAPATINIB [Suspect]
     Indication: BREAST CANCER
     Route: 048

REACTIONS (7)
  - CHAPPED LIPS [None]
  - ACTINOMYCOSIS [None]
  - DIARRHOEA [None]
  - RASH [None]
  - SKIN PLAQUE [None]
  - GAIT DISTURBANCE [None]
  - ERYTHEMA [None]
